FAERS Safety Report 7615697-2 (Version None)
Quarter: 2011Q3

REPORT INFORMATION
  Report Type: 
  Country: None (occurrence: None)
  Receive Date: 20110715
  Receipt Date: 20110715
  Transmission Date: 20111222
  Serious: Yes (Hospitalization)
  Sender: FDA-Public Use
  Company Number: None

PATIENT
  Age: 52 Year
  Sex: Female
  Weight: 98.8842 kg

DRUGS (1)
  1. TINDAMAX [Suspect]
     Indication: VAGINITIS BACTERIAL
     Dosage: 4 IN 1 DAY, ORAL
     Route: 048
     Dates: start: 20110107, end: 20110108

REACTIONS (1)
  - PANCREATITIS ACUTE [None]
